FAERS Safety Report 5302136-X (Version None)
Quarter: 2007Q2

REPORT INFORMATION
  Report Type: 
  Country: None (occurrence: None)
  Receive Date: 20070419
  Receipt Date: 20070330
  Transmission Date: 20071010
  Serious: Yes (Other)
  Sender: FDA-Public Use
  Company Number: GB-JNJFOC-20070303063

PATIENT
  Age: 88 Year
  Sex: Male
  Weight: 66 kg

DRUGS (4)
  1. REMICADE [Suspect]
     Route: 042
  2. REMICADE [Suspect]
     Indication: CROHN'S DISEASE
     Route: 042
  3. AZATHOPRINE [Concomitant]
     Indication: CROHN'S DISEASE
     Route: 048
  4. MESALAZINE [Concomitant]

REACTIONS (5)
  - CELLULITIS [None]
  - FLUSHING [None]
  - GOUT [None]
  - INFLAMMATION [None]
  - OEDEMA PERIPHERAL [None]
